FAERS Safety Report 23297327 (Version 1)
Quarter: 2023Q4

REPORT INFORMATION
  Report Type: Spontaneous
  Country: JP (occurrence: JP)
  Receive Date: 20231214
  Receipt Date: 20231214
  Transmission Date: 20240110
  Serious: Yes (Death, Other)
  Sender: FDA-Public Use
  Company Number: JP-MSD-M2023-53632

PATIENT
  Age: 3 Decade
  Sex: Female

DRUGS (11)
  1. ZERBAXA [Suspect]
     Active Substance: CEFTOLOZANE SULFATE\TAZOBACTAM SODIUM
     Indication: Pneumonia pseudomonal
     Dosage: 3000 MILLIGRAM, TID
     Route: 041
     Dates: start: 2020, end: 2020
  2. SULFAMETHOXAZOLE\TRIMETHOPRIM [Concomitant]
     Active Substance: SULFAMETHOXAZOLE\TRIMETHOPRIM
     Indication: Pneumonia pseudomonal
     Dosage: 15 MILLIGRAM/KILOGRAM, TID
     Route: 041
     Dates: start: 2020, end: 2020
  3. AZTREONAM [Concomitant]
     Active Substance: AZTREONAM
     Indication: Pneumonia pseudomonal
     Dosage: 1 GRAM
     Route: 041
     Dates: start: 2020, end: 2020
  4. CIPROFLOXACIN HYDROCHLORIDE [Concomitant]
     Active Substance: CIPROFLOXACIN HYDROCHLORIDE
     Indication: Pneumonia pseudomonal
     Dosage: 400 MILLIGRAM, BID
     Route: 041
     Dates: start: 2020, end: 2020
  5. MINOCYCLINE HYDROCHLORIDE [Concomitant]
     Active Substance: MINOCYCLINE HYDROCHLORIDE
     Indication: Pneumonia pseudomonal
     Dosage: 100 MILLIGRAM, QD
     Route: 048
     Dates: start: 2020, end: 2020
  6. LINEZOLID [Concomitant]
     Active Substance: LINEZOLID
     Indication: Pneumonia pseudomonal
     Dosage: 600 MILLIGRAM, BID
     Route: 041
     Dates: start: 2020, end: 2020
  7. MEROPENEM [Concomitant]
     Active Substance: MEROPENEM
     Indication: Pneumonia pseudomonal
     Dosage: 0.5 GRAM, BID
     Route: 041
     Dates: start: 2020, end: 2020
  8. AMPICILLIN SODIUM\SULBACTAM SODIUM [Concomitant]
     Active Substance: AMPICILLIN SODIUM\SULBACTAM SODIUM
     Indication: Pneumonia pseudomonal
     Dosage: 3 GRAM, BID
     Route: 041
     Dates: start: 2020, end: 2020
  9. PIPERACILLIN SODIUM\TAZOBACTAM SODIUM [Concomitant]
     Active Substance: PIPERACILLIN SODIUM\TAZOBACTAM SODIUM
     Indication: Pneumonia pseudomonal
     Dosage: 4.5 GRAM, TID
     Route: 041
     Dates: start: 2020, end: 2020
  10. COLISTIN [COLISTIN SULFATE] [Concomitant]
     Indication: Pneumonia pseudomonal
     Dosage: 1.25 MILLIGRAM/KILOGRAM, BID
     Route: 041
     Dates: start: 2020, end: 2020
  11. TEICOPLANIN [Concomitant]
     Active Substance: TEICOPLANIN
     Indication: Pneumonia pseudomonal
     Dosage: 200 MILLIGRAM, QD
     Route: 065
     Dates: start: 2020, end: 2020

REACTIONS (1)
  - Pneumonia pseudomonal [Fatal]

NARRATIVE: CASE EVENT DATE: 20200101
